FAERS Safety Report 6464665-5 (Version None)
Quarter: 2009Q4

REPORT INFORMATION
  Report Type: 
  Country: None (occurrence: None)
  Receive Date: 20091201
  Receipt Date: 20091123
  Transmission Date: 20100525
  Serious: Yes (Other)
  Sender: FDA-Public Use
  Company Number: US-WYE-H12003709

PATIENT
  Sex: Male
  Weight: 10.55 kg

DRUGS (2)
  1. XYNTHA [Suspect]
     Indication: FACTOR VIII DEFICIENCY
     Dosage: 965 UNIT EVERY 1 DAY;  CUMULATIVE DOSE TO EVENT: 1444 UNIT
     Route: 042
     Dates: start: 20090928, end: 20090928
  2. XYNTHA [Suspect]
     Dosage: 479 UNIT EVERY 1 DAY
     Route: 042
     Dates: start: 20091007, end: 20091007

REACTIONS (1)
  - FACTOR VIII INHIBITION [None]
